FAERS Safety Report 7652472-7 (Version None)
Quarter: 2011Q3

REPORT INFORMATION
  Report Type: 
  Country: None (occurrence: None)
  Receive Date: 20110803
  Receipt Date: 20110727
  Transmission Date: 20111222
  Serious: Yes (Life-Threatening)
  Sender: FDA-Public Use
  Company Number: JP-ASTELLAS-2011JP004714

PATIENT
  Sex: Female
  Weight: 45.9 kg

DRUGS (18)
  1. TARGOCID [Concomitant]
     Indication: FEBRILE NEUTROPENIA
     Dosage: 400 MG, BID
     Route: 065
     Dates: start: 20101129, end: 20101201
  2. TARGOCID [Concomitant]
     Dosage: 200 MG, UID/QD
     Route: 065
     Dates: start: 20110204, end: 20110216
  3. NEUPOGEN [Concomitant]
     Indication: WHITE BLOOD CELL COUNT DECREASED
  4. NEUPOGEN [Concomitant]
     Indication: NEUTROPHIL COUNT DECREASED
  5. ZOSYN [Concomitant]
     Indication: FEBRILE NEUTROPENIA
     Dosage: 4.5 G, TID
     Route: 065
     Dates: start: 20101005, end: 20101013
  6. MEROPENEM [Concomitant]
     Indication: FEBRILE NEUTROPENIA
     Dosage: 0.5 G, TID
     Route: 065
     Dates: start: 20101013, end: 20101104
  7. HABEKACIN [Concomitant]
     Indication: FEBRILE NEUTROPENIA
     Dosage: 200 MG, UID/QD
     Route: 065
     Dates: start: 20101026, end: 20101129
  8. TARGOCID [Concomitant]
     Dosage: 200 MG, UID/QD
     Route: 065
     Dates: start: 20101202, end: 20110127
  9. FLUCONAZOLE [Concomitant]
     Indication: FEBRILE NEUTROPENIA
     Dosage: 400 MG, UID/QD
     Route: 065
     Dates: start: 20100930, end: 20101015
  10. ZOSYN [Concomitant]
     Dosage: 4.5 G, TID
     Route: 065
     Dates: start: 20110211, end: 20110322
  11. MEROPENEM [Concomitant]
     Dosage: 0.5 G, TID
     Route: 065
     Dates: start: 20110204, end: 20110210
  12. FLUCONAZOLE [Concomitant]
     Indication: SEPSIS
     Dosage: 400 MG, UID/QD
     Route: 065
     Dates: start: 20110212, end: 20110415
  13. ZOSYN [Concomitant]
     Dosage: 4.5 G, TID
     Route: 065
     Dates: start: 20101129, end: 20110131
  14. CIPROFLOXACIN HCL [Concomitant]
     Indication: FEBRILE NEUTROPENIA
     Dosage: 300 MG, BID
     Route: 065
     Dates: start: 20101104, end: 20101129
  15. FUNGUARD [Suspect]
     Dosage: 150 MG, UID/QD
     Route: 041
     Dates: start: 20110114, end: 20110127
  16. RITUXAN [Concomitant]
     Indication: B-CELL LYMPHOMA
     Route: 065
  17. FUNGUARD [Suspect]
     Indication: FEBRILE NEUTROPENIA
     Dosage: 150 MG, UID/QD
     Route: 041
     Dates: start: 20101013, end: 20101229
  18. FUNGUARD [Suspect]
     Dosage: 300 MG, UID/QD
     Route: 041
     Dates: start: 20110208, end: 20110211

REACTIONS (1)
  - TRICHOSPORON INFECTION [None]
